FAERS Safety Report 10688512 (Version 2)
Quarter: 2015Q1

REPORT INFORMATION
  Report Type: Spontaneous
  Country: US (occurrence: None)
  Receive Date: 20141231
  Receipt Date: 20150227
  Transmission Date: 20150720
  Serious: Yes (Death)
  Sender: FDA-Public Use
  Company Number: 1224850-2014-00011

PATIENT
  Age: 64 Year
  Sex: Female
  Weight: 61.9 kg

DRUGS (29)
  1. FRESENIUS 2008T HEMODIALYSIS SYSTEM [Concomitant]
  2. BENADRYL [Concomitant]
     Active Substance: DIPHENHYDRAMINE HYDROCHLORIDE
  3. MELATONIN [Concomitant]
     Active Substance: MELATONIN
  4. MIRALAX [Concomitant]
     Active Substance: POLYETHYLENE GLYCOL 3350
  5. COUMADIN [Concomitant]
     Active Substance: WARFARIN SODIUM
  6. FMC BLOODLINES [Concomitant]
  7. PREDNISONE ACETATE [Concomitant]
     Active Substance: PREDNISONE ACETATE
  8. SENSIPAR [Concomitant]
     Active Substance: CINACALCET HYDROCHLORIDE
  9. PLAVIX [Concomitant]
     Active Substance: CLOPIDOGREL BISULFATE
  10. NITRODUR PATCH [Concomitant]
  11. CARVEDILOL. [Concomitant]
     Active Substance: CARVEDILOL
  12. ZOLOFT [Concomitant]
     Active Substance: SERTRALINE HYDROCHLORIDE
  13. PEROCOCENT [Concomitant]
  14. PRILOSEC [Concomitant]
     Active Substance: OMEPRAZOLE MAGNESIUM
  15. ACETAMINOPHEN. [Concomitant]
     Active Substance: ACETAMINOPHEN
  16. GEMTAMICIN OINTMENT [Concomitant]
  17. NEPHROCAPS [Concomitant]
     Active Substance: ASCORBIC ACID\BIOTIN\CYANOCOBALAMIN\FOLIC ACID\NIACIN\PANTOTHENIC ACID\PYRIDOXINE\RIBOFLAVIN\THIAMINE
  18. NATURALYTE BICARBONATE [Concomitant]
     Active Substance: SODIUM BICARBONATE
  19. DRY ACID [Concomitant]
  20. VENOFER [Concomitant]
     Active Substance: IRON SUCROSE
  21. CYCLOBENZAPRINE [Concomitant]
     Active Substance: CYCLOBENZAPRINE
  22. LABETALOL [Concomitant]
     Active Substance: LABETALOL\LABETALOL HYDROCHLORIDE
  23. OXYCODONE [Concomitant]
     Active Substance: OXYCODONE
  24. PHOSLO [Suspect]
     Active Substance: CALCIUM ACETATE
     Indication: CHRONIC KIDNEY DISEASE
     Dates: start: 201112, end: 201412
  25. FRESENIUS DIALYZER [Concomitant]
  26. ZEMPLAR [Concomitant]
     Active Substance: PARICALCITOL
  27. CINACALCET [Concomitant]
     Active Substance: CINACALCET
  28. LIPITOR [Concomitant]
     Active Substance: ATORVASTATIN CALCIUM
  29. GRANUFLO [Concomitant]
     Active Substance: ACETIC ACID\SODIUM ACETATE

REACTIONS (2)
  - Cardiac arrest [None]
  - Myocardial infarction [None]

NARRATIVE: CASE EVENT DATE: 20141204
